FAERS Safety Report 8722357 (Version 3)
Quarter: 2013Q4

REPORT INFORMATION
  Report Type: Spontaneous
  Country: US (occurrence: US)
  Receive Date: 20120814
  Receipt Date: 20131018
  Transmission Date: 20140711
  Serious: Yes (Hospitalization)
  Sender: FDA-Public Use
  Company Number: US-009507513-1208USA004606

PATIENT
  Age: 57 Year
  Sex: Female

DRUGS (12)
  1. MAXALT [Suspect]
     Indication: MIGRAINE
     Dosage: 1 TABLET AS NEEDED FOR HEADACHE AND MAY REPEAT 1 TABLET IN 24 HOURS
     Route: 048
     Dates: start: 20120711, end: 20130823
  2. NEXIUM [Concomitant]
     Route: 048
  3. ALPRAZOLAM [Concomitant]
  4. LEVETIRACETAM [Concomitant]
  5. BUMETANIDE [Concomitant]
  6. LITHIUM CARBONATE [Concomitant]
  7. DONNATAL [Concomitant]
  8. LIDOCAINE [Concomitant]
  9. MAALOX (SIMETHICONE) [Concomitant]
  10. PROMETHAZINE [Concomitant]
  11. FUROSEMIDE [Concomitant]
  12. METHYLPHENIDATE [Concomitant]

REACTIONS (4)
  - Coeliac disease [Unknown]
  - Impaired gastric emptying [Unknown]
  - Endoscopic retrograde cholangiopancreatography [Unknown]
  - Post procedural complication [Unknown]
